FAERS Safety Report 17998545 (Version 1)
Quarter: 2020Q3

REPORT INFORMATION
  Report Type: Spontaneous
  Country: US (occurrence: US)
  Receive Date: 20200709
  Receipt Date: 20200709
  Transmission Date: 20201103
  Serious: No
  Sender: FDA-Public Use
  Company Number: US-LUPIN PHARMACEUTICALS INC.-2020-02494

PATIENT
  Age: 61 Year
  Sex: Female
  Weight: 64 kg

DRUGS (3)
  1. MOXIFLOXACIN OPHTHALMIC SOLUTION USP 0.5% [Suspect]
     Active Substance: MOXIFLOXACIN
     Indication: EYE INFECTION
     Dosage: UNK UNK, QD, 3 DROPS LEFT EAR AND 2 DROPS RIGHT EAR DAILY X 7 D, 1 DROP EACH EYE DAILY X 7 DAYS
     Dates: start: 20200506, end: 202005
  2. MOXIFLOXACIN OPHTHALMIC SOLUTION USP 0.5% [Suspect]
     Active Substance: MOXIFLOXACIN
     Indication: EAR INFECTION
  3. HCTZ [Concomitant]
     Active Substance: HYDROCHLOROTHIAZIDE
     Indication: HYPERTENSION
     Dosage: UNK
     Route: 048

REACTIONS (5)
  - Product physical consistency issue [Unknown]
  - Off label use [Unknown]
  - Product quality issue [Unknown]
  - Eyelid margin crusting [Not Recovered/Not Resolved]
  - Foreign body sensation in eyes [Not Recovered/Not Resolved]

NARRATIVE: CASE EVENT DATE: 20200506
